FAERS Safety Report 19177278 (Version 1)
Quarter: 2021Q2

REPORT INFORMATION
  Report Type: Spontaneous
  Country: US (occurrence: US)
  Receive Date: 20210425
  Receipt Date: 20210425
  Transmission Date: 20210717
  Serious: Yes (Other)
  Sender: FDA-Public Use
  Company Number: US-UNITED THERAPEUTICS-UNT-2021-002113

PATIENT
  Age: 11 Year
  Sex: Female

DRUGS (5)
  1. UNITUXIN [Suspect]
     Active Substance: DINUTUXIMAB
     Indication: NEUROBLASTOMA
     Dosage: UNK, CYCLICAL (25MG/M2/DAY X 4 DAYS) GIVEN EVERY 28 DAYS
     Route: 041
     Dates: start: 20080407, end: 20080929
  2. PROLEUKIN [Suspect]
     Active Substance: ALDESLEUKIN
     Dosage: UNK (4.5X10^6 IU/M2/24 HOURS X 96 HOURS)
     Route: 065
  3. LEUKINE [Suspect]
     Active Substance: SARGRAMOSTIM
     Indication: NEUROBLASTOMA
     Dosage: UNK, CYCLICAL (250MCG/M2/DAY X 14 DAYS) IN CYCLES 1, 3, AND 5
     Route: 065
  4. PROLEUKIN [Suspect]
     Active Substance: ALDESLEUKIN
     Indication: NEUROBLASTOMA
     Dosage: UNK (3X10^6 IU/M2/24 HOURS X 96 HOURS) DURING THE WEEK PRIOR TO DINUTUXIMAB
     Route: 065
  5. ISOTRETINOIN. [Suspect]
     Active Substance: ISOTRETINOIN
     Indication: NEUROBLASTOMA
     Dosage: UNK
     Route: 048

REACTIONS (1)
  - Osteosarcoma [Recovered/Resolved]

NARRATIVE: CASE EVENT DATE: 20160923
